FAERS Safety Report 7396736-3 (Version None)
Quarter: 2011Q1

REPORT INFORMATION
  Report Type: 
  Country: None (occurrence: None)
  Receive Date: 20110328
  Receipt Date: 20110315
  Transmission Date: 20110831
  Serious: Yes (Other)
  Sender: FDA-Public Use
  Company Number: 1000019450

PATIENT
  Sex: Male

DRUGS (1)
  1. ROFLUMILAST(ROFLUMILAST) (500 MICROGRAM, TABLETS) [Suspect]
     Indication: CHRONIC OBSTRUCTIVE PULMONARY DISEASE
     Dosage: 500 MCG (500 MCG, 1 IN 1 D), ORAL
     Route: 048
     Dates: start: 20110201, end: 20110201

REACTIONS (5)
  - NAUSEA [None]
  - DIARRHOEA [None]
  - SUICIDAL IDEATION [None]
  - INSOMNIA [None]
  - VOMITING [None]
